FAERS Safety Report 6295855-2 (Version None)
Quarter: 2009Q3

REPORT INFORMATION
  Report Type: 
  Country: None (occurrence: None)
  Receive Date: 20090731
  Receipt Date: 20090723
  Transmission Date: 20100115
  Serious: Yes (Hospitalization)
  Sender: FDA-Public Use
  Company Number: 8049371

PATIENT
  Age: 53 Year
  Sex: Male
  Weight: 75 kg

DRUGS (5)
  1. CIMZIA [Suspect]
     Indication: CROHN'S DISEASE
     Dosage: 400 MG /M SC
     Route: 058
     Dates: start: 20090401
  2. PENTASA [Concomitant]
  3. PREDNISONE [Concomitant]
  4. MORPHINE SULFATE [Concomitant]
  5. CEPHALEXIN [Concomitant]

REACTIONS (5)
  - ARTHRITIS INFECTIVE [None]
  - CONDITION AGGRAVATED [None]
  - CROHN'S DISEASE [None]
  - MYALGIA [None]
  - STAPHYLOCOCCAL INFECTION [None]
